FAERS Safety Report 9107828 (Version 1)
Quarter: 2013Q1

REPORT INFORMATION
  Report Type: Spontaneous
  Country: US (occurrence: US)
  Receive Date: 20130221
  Receipt Date: 20130221
  Transmission Date: 20140127
  Serious: No
  Sender: FDA-Public Use
  Company Number: US-PFIZER INC-2013061211

PATIENT
  Age: 71 Year
  Sex: Female
  Weight: 67.57 kg

DRUGS (1)
  1. TOVIAZ [Suspect]
     Indication: URINARY INCONTINENCE
     Dosage: 1 DF, 1X/DAY
     Dates: start: 201301

REACTIONS (1)
  - Drug ineffective [Unknown]
